FAERS Safety Report 10591402 (Version 4)
Quarter: 2016Q1

REPORT INFORMATION
  Report Type: Spontaneous
  Country: US (occurrence: US)
  Receive Date: 20141118
  Receipt Date: 20160211
  Transmission Date: 20160525
  Serious: Yes (Hospitalization, Disabling, Other)
  Sender: FDA-Public Use
  Company Number: US-PFIZER INC-2014316611

PATIENT
  Age: 57 Year
  Sex: Female
  Weight: 65.76 kg

DRUGS (16)
  1. PROPRANOLOL [Concomitant]
     Active Substance: PROPRANOLOL\PROPRANOLOL HYDROCHLORIDE
     Indication: HEART RATE INCREASED
  2. ATORVASTATIN [Concomitant]
     Active Substance: ATORVASTATIN
     Dosage: UNK
  3. VALSARTAN. [Concomitant]
     Active Substance: VALSARTAN
     Dosage: 320 MG, DAILY
     Route: 048
     Dates: start: 201202
  4. PROPRANOLOL [Concomitant]
     Active Substance: PROPRANOLOL\PROPRANOLOL HYDROCHLORIDE
     Indication: PANIC ATTACK
     Dosage: 20 MG, AS NEEDED (SIX TIMES A DAY WHEN NEEDED, USUALLY TAKES ONE AT NIGHT/MAY TAKE 1 IN MORNING)
     Route: 048
     Dates: start: 2006
  5. COENZYME Q10 [Concomitant]
     Active Substance: UBIDECARENONE
     Indication: BLOOD CHOLESTEROL INCREASED
     Dosage: 150 MG, DAILY
     Route: 048
     Dates: start: 2012
  6. NIACIN. [Concomitant]
     Active Substance: NIACIN
     Indication: BLOOD CHOLESTEROL INCREASED
     Dosage: UNK
  7. NIACIN. [Concomitant]
     Active Substance: NIACIN
     Indication: HYPERTENSION
  8. PRISTIQ EXTENDED RELEASE [Suspect]
     Active Substance: DESVENLAFAXINE SUCCINATE
     Dosage: 50 MG, UNK
     Route: 048
     Dates: start: 2014
  9. COENZYME Q10 [Concomitant]
     Active Substance: UBIDECARENONE
     Indication: BLOOD PRESSURE ABNORMAL
  10. PRISTIQ EXTENDED RELEASE [Suspect]
     Active Substance: DESVENLAFAXINE SUCCINATE
     Indication: DEPRESSION
     Dosage: 50 MG, 1X/DAY
     Route: 048
     Dates: start: 201201
  11. VALSARTAN. [Concomitant]
     Active Substance: VALSARTAN
     Indication: HYPERTENSION
     Dosage: 150 MG, DAILY
     Dates: start: 2006
  12. HYDROCHLOROTHIAZIDE. [Concomitant]
     Active Substance: HYDROCHLOROTHIAZIDE
     Indication: DIURETIC THERAPY
     Dosage: 25 MG, DAILY
     Route: 048
     Dates: start: 2006
  13. PRISTIQ EXTENDED RELEASE [Suspect]
     Active Substance: DESVENLAFAXINE SUCCINATE
     Dosage: 100 MG, 1X/DAY (DOSE PER DAY)
     Route: 048
     Dates: start: 201402, end: 2014
  14. PROPRANOLOL [Concomitant]
     Active Substance: PROPRANOLOL\PROPRANOLOL HYDROCHLORIDE
     Indication: ANXIETY
  15. COENZYME Q10 [Concomitant]
     Active Substance: UBIDECARENONE
     Indication: SUPPLEMENTATION THERAPY
  16. VITAMIN B12 [Concomitant]
     Active Substance: CYANOCOBALAMIN
     Indication: SUPPLEMENTATION THERAPY
     Dosage: 1 DF, DAILY
     Route: 048
     Dates: start: 2015

REACTIONS (56)
  - Suicidal ideation [Not Recovered/Not Resolved]
  - Intervertebral disc protrusion [Not Recovered/Not Resolved]
  - Rib fracture [Recovered/Resolved]
  - Musculoskeletal pain [Unknown]
  - Irritability [Unknown]
  - Skin abrasion [Recovered/Resolved with Sequelae]
  - Joint effusion [Unknown]
  - Neuralgia [Unknown]
  - Depression [Unknown]
  - Pain [Not Recovered/Not Resolved]
  - Bipolar disorder [Not Recovered/Not Resolved]
  - Coordination abnormal [Not Recovered/Not Resolved]
  - Pubis fracture [Not Recovered/Not Resolved]
  - Amnesia [Not Recovered/Not Resolved]
  - Arthralgia [Not Recovered/Not Resolved]
  - Motor dysfunction [Recovered/Resolved]
  - Scar [Unknown]
  - Road traffic accident [Recovered/Resolved with Sequelae]
  - Hypertension [Not Recovered/Not Resolved]
  - Joint dislocation [Recovered/Resolved]
  - Anger [Not Recovered/Not Resolved]
  - Nausea [Not Recovered/Not Resolved]
  - Photopsia [Not Recovered/Not Resolved]
  - Dyspnoea [Not Recovered/Not Resolved]
  - Vertigo [Recovered/Resolved]
  - Concussion [Recovered/Resolved with Sequelae]
  - Joint dislocation [Not Recovered/Not Resolved]
  - Sensory loss [Unknown]
  - Vomiting projectile [Not Recovered/Not Resolved]
  - Multiple fractures [Not Recovered/Not Resolved]
  - Craniocerebral injury [Unknown]
  - Haemorrhage [Recovered/Resolved]
  - Post-traumatic neck syndrome [Recovered/Resolved with Sequelae]
  - Joint injury [Recovered/Resolved]
  - Pelvic pain [Unknown]
  - Fall [Not Recovered/Not Resolved]
  - Osteorrhagia [Unknown]
  - Post-traumatic stress disorder [Not Recovered/Not Resolved]
  - Personality change [Not Recovered/Not Resolved]
  - Migraine [Not Recovered/Not Resolved]
  - Gastrooesophageal reflux disease [Not Recovered/Not Resolved]
  - Feeling abnormal [Not Recovered/Not Resolved]
  - Therapeutic response unexpected [Not Recovered/Not Resolved]
  - Pelvic fracture [Recovered/Resolved]
  - Loss of consciousness [Recovered/Resolved]
  - Lumbar vertebral fracture [Not Recovered/Not Resolved]
  - Spinal osteoarthritis [Not Recovered/Not Resolved]
  - Headache [Not Recovered/Not Resolved]
  - Gait disturbance [Not Recovered/Not Resolved]
  - Drug intolerance [Unknown]
  - Hip fracture [Unknown]
  - Rotator cuff syndrome [Not Recovered/Not Resolved]
  - Weight increased [Not Recovered/Not Resolved]
  - Eructation [Not Recovered/Not Resolved]
  - Contusion [Recovered/Resolved]
  - Back pain [Not Recovered/Not Resolved]

NARRATIVE: CASE EVENT DATE: 201201
